FAERS Safety Report 16135345 (Version 3)
Quarter: 2019Q4

REPORT INFORMATION
  Report Type: Report from Study
  Country: FR (occurrence: FR)
  Receive Date: 20190329
  Receipt Date: 20191120
  Transmission Date: 20200122
  Serious: Yes (Death, Hospitalization, Other)
  Sender: FDA-Public Use
  Company Number: FR-JAZZ-2019-FR-004418

PATIENT

DRUGS (5)
  1. PANTOPRAZOLE [Concomitant]
     Active Substance: PANTOPRAZOLE
     Indication: GASTRODUODENAL ULCER
     Dosage: 40 MG, BID
     Route: 042
     Dates: start: 20180818, end: 20181111
  2. ACICLOVIR [Concomitant]
     Active Substance: ACYCLOVIR
     Indication: HERPES ZOSTER
     Dosage: 250 MG, TID
     Route: 042
     Dates: start: 201801, end: 20181111
  3. KEPPRA [Concomitant]
     Active Substance: LEVETIRACETAM
     Indication: STATUS EPILEPTICUS
     Dosage: 750 MG, BID
     Route: 042
     Dates: start: 20180824, end: 20181111
  4. DEFITELIO [Suspect]
     Active Substance: DEFIBROTIDE SODIUM
     Indication: VENOOCCLUSIVE DISEASE
     Dosage: 25 MG/KG, QD
     Route: 042
     Dates: start: 20180523, end: 20180712
  5. TAZOCILLINE [Concomitant]
     Active Substance: PIPERACILLIN SODIUM\TAZOBACTAM SODIUM
     Indication: PERITONITIS
     Dosage: 4 G, BID
     Route: 042
     Dates: start: 201808, end: 20181111

REACTIONS (7)
  - Capillary leak syndrome [Fatal]
  - Gastrointestinal haemorrhage [Unknown]
  - Venoocclusive disease [Fatal]
  - Shock haemorrhagic [Fatal]
  - Peritonitis [Fatal]
  - Septic shock [Fatal]
  - Multiple organ dysfunction syndrome [Fatal]

NARRATIVE: CASE EVENT DATE: 20181111
